FAERS Safety Report 6631897-2 (Version None)
Quarter: 2010Q1

REPORT INFORMATION
  Report Type: 
  Country: None (occurrence: None)
  Receive Date: 20100312
  Receipt Date: 20090602
  Transmission Date: 20100710
  Serious: No
  Sender: FDA-Public Use
  Company Number: US-BIOGENIDEC-2009BI016838

PATIENT
  Age: 23 Year
  Sex: Female

DRUGS (2)
  1. AVONEX [Suspect]
     Indication: MULTIPLE SCLEROSIS
     Route: 030
     Dates: start: 20050801, end: 20060801
  2. AVONEX [Suspect]
     Route: 030
     Dates: start: 20061201

REACTIONS (5)
  - BACK PAIN [None]
  - GAIT DISTURBANCE [None]
  - HEADACHE [None]
  - HYPOAESTHESIA [None]
  - PAIN IN EXTREMITY [None]
